FAERS Safety Report 8207059 (Version 2)
Quarter: 2012Q4

REPORT INFORMATION
  Report Type: Spontaneous
  Country: US (occurrence: None)
  Receive Date: 20111019
  Receipt Date: 20120426
  Transmission Date: 20130627
  Serious: Yes (Other)
  Sender: FDA-Public Use
  Company Number: 2011GW000536

PATIENT
  Age: 54 Year
  Sex: Female
  Weight: 80.29 kg

DRUGS (1)
  1. ZYCLARA [Suspect]
     Indication: ACTINIC KERATOSIS
     Dosage: 3.75 PCT; EXW; TOP
     Route: 061
     Dates: start: 201107, end: 20110826

REACTIONS (8)
  - VISUAL FIELD DEFECT [None]
  - BLEPHAROSPASM [None]
  - VISION BLURRED [None]
  - DIPLOPIA [None]
  - APPLICATION SITE SCAR [None]
  - APPLICATION SITE DISCOLOURATION [None]
  - APPLICATION SITE VESICLES [None]
  - MULTIPLE SCLEROSIS [None]
